FAERS Safety Report 20493733 (Version 5)
Quarter: 2022Q4

REPORT INFORMATION
  Report Type: Spontaneous
  Country: CA (occurrence: CA)
  Receive Date: 20220221
  Receipt Date: 20221119
  Transmission Date: 20230113
  Serious: Yes (Other)
  Sender: FDA-Public Use
  Company Number: CA-CELLTRION INC.-2019CA024880

PATIENT

DRUGS (17)
  1. INFLECTRA [Suspect]
     Active Substance: INFLIXIMAB-DYYB
     Indication: Crohn^s disease
     Dosage: 500 MG THEN EVERY 7 WEEKS
     Route: 042
     Dates: start: 20191104
  2. INFLECTRA [Suspect]
     Active Substance: INFLIXIMAB-DYYB
     Dosage: 500 MG THEN EVERY 7 WEEKS
     Route: 042
     Dates: start: 20191223
  3. INFLECTRA [Suspect]
     Active Substance: INFLIXIMAB-DYYB
     Dosage: 500 MG THEN EVERY 7 WEEKS
     Route: 042
     Dates: start: 20200210
  4. INFLECTRA [Suspect]
     Active Substance: INFLIXIMAB-DYYB
     Dosage: 500 MG THEN EVERY 7 WEEKS
     Route: 042
     Dates: start: 20200406
  5. INFLECTRA [Suspect]
     Active Substance: INFLIXIMAB-DYYB
     Dosage: 500 MG THEN EVERY 7 WEEKS
     Route: 042
     Dates: start: 20200527
  6. INFLECTRA [Suspect]
     Active Substance: INFLIXIMAB-DYYB
     Dosage: 500 MG THEN EVERY 7 WEEKS
     Route: 042
     Dates: start: 20200716
  7. INFLECTRA [Suspect]
     Active Substance: INFLIXIMAB-DYYB
     Dosage: 500 MG THEN EVERY 7 WEEKS
     Route: 042
     Dates: start: 20200903
  8. INFLECTRA [Suspect]
     Active Substance: INFLIXIMAB-DYYB
     Dosage: 500 MG THEN EVERY 7 WEEKS
     Route: 042
     Dates: start: 20201022
  9. INFLECTRA [Suspect]
     Active Substance: INFLIXIMAB-DYYB
     Dosage: 500 MG THEN EVERY 7 WEEKS
     Route: 042
     Dates: start: 20201209
  10. INFLECTRA [Suspect]
     Active Substance: INFLIXIMAB-DYYB
     Dosage: 500 MG THEN EVERY 7 WEEKS
     Route: 042
     Dates: start: 20210128
  11. INFLECTRA [Suspect]
     Active Substance: INFLIXIMAB-DYYB
     Dosage: 500 MG THEN EVERY 7 WEEKS
     Route: 042
     Dates: start: 20210318
  12. INFLECTRA [Suspect]
     Active Substance: INFLIXIMAB-DYYB
     Dosage: 500 MG THEN EVERY 7 WEEKS
     Route: 042
     Dates: start: 20211125
  13. INFLECTRA [Suspect]
     Active Substance: INFLIXIMAB-DYYB
     Dosage: 500 MG THEN EVERY 7 WEEKS
     Route: 042
     Dates: start: 20220125
  14. INFLECTRA [Suspect]
     Active Substance: INFLIXIMAB-DYYB
     Dosage: 500 MG THEN EVERY 7 WEEKS
     Route: 042
     Dates: start: 20220307
  15. INFLECTRA [Suspect]
     Active Substance: INFLIXIMAB-DYYB
     Dosage: 500 MG THEN EVERY 7 WEEKS
     Route: 042
     Dates: start: 20220921
  16. INFLECTRA [Suspect]
     Active Substance: INFLIXIMAB-DYYB
     Dosage: 500 MG THEN EVERY 7 WEEKS
     Route: 042
     Dates: start: 20221109
  17. AZATHIOPRINE [Concomitant]
     Active Substance: AZATHIOPRINE
     Dosage: 4 DF, 1X/DAY
     Route: 048
     Dates: start: 2012

REACTIONS (9)
  - Crohn^s disease [Not Recovered/Not Resolved]
  - Off label use [Unknown]
  - Off label use [Unknown]
  - Intentional product use issue [Unknown]
  - Inappropriate schedule of product administration [Unknown]
  - Blood pressure increased [Unknown]
  - Weight increased [Recovering/Resolving]
  - Heart rate decreased [Unknown]
  - Condition aggravated [Not Recovered/Not Resolved]

NARRATIVE: CASE EVENT DATE: 20191104
